FAERS Safety Report 5268264-2 (Version None)
Quarter: 2007Q1

REPORT INFORMATION
  Report Type: 
  Country: None (occurrence: None)
  Receive Date: 20070313
  Receipt Date: 20070227
  Transmission Date: 20070707
  Serious: Yes (Death)
  Sender: FDA-Public Use
  Company Number: 2006S1011871

PATIENT
  Age: 19 Year
  Sex: Male
  Weight: 63.5036 kg

DRUGS (3)
  1. FENTANYL TRANSDERMAL SYSTEM [Suspect]
     Dosage: ORAL
     Route: 048
     Dates: end: 20050501
  2. METHAMPHETAMINE HYDROCHLORIDE [Suspect]
  3. ALPRAZOLAM [Suspect]

REACTIONS (4)
  - DRUG ABUSER [None]
  - DRUG TOXICITY [None]
  - INCORRECT ROUTE OF DRUG ADMINISTRATION [None]
  - MULTI-ORGAN FAILURE [None]
